FAERS Safety Report 13345843 (Version 2)
Quarter: 2017Q1

REPORT INFORMATION
  Report Type: Other
  Country: FI (occurrence: FI)
  Receive Date: 20170317
  Receipt Date: 20170330
  Transmission Date: 20170428
  Serious: Yes (Other)
  Sender: FDA-Public Use
  Company Number: FI-CELLTRION INC.-2017FI003158

PATIENT

DRUGS (4)
  1. INFLECTRA [Suspect]
     Active Substance: INFLIXIMAB-DYYB
     Indication: PRODUCT USED FOR UNKNOWN INDICATION
     Dosage: 300 MG, UNK
     Route: 042
     Dates: start: 20170202
  2. INFLECTRA [Suspect]
     Active Substance: INFLIXIMAB-DYYB
     Dosage: 300 UNK, UNK
     Route: 065
     Dates: start: 20170224
  3. AZAMUN [Concomitant]
     Active Substance: AZATHIOPRINE
     Dosage: 150 MG, UNK
     Route: 048
     Dates: start: 201108
  4. MERCILON [Concomitant]
     Active Substance: DESOGESTREL\ETHINYL ESTRADIOL

REACTIONS (12)
  - Diarrhoea haemorrhagic [Recovering/Resolving]
  - Abdominal pain upper [Recovering/Resolving]
  - Proctitis [Recovering/Resolving]
  - Mass [Not Recovered/Not Resolved]
  - Infusion related reaction [Recovering/Resolving]
  - Pyrexia [Recovering/Resolving]
  - Rash [Recovering/Resolving]
  - Cytomegalovirus infection [Recovering/Resolving]
  - Erythema [Recovering/Resolving]
  - Body temperature fluctuation [Recovering/Resolving]
  - Hyperhidrosis [Recovering/Resolving]
  - Constipation [Recovering/Resolving]

NARRATIVE: CASE EVENT DATE: 20170202
